FAERS Safety Report 15836629 (Version 3)
Quarter: 2019Q1

REPORT INFORMATION
  Report Type: Spontaneous
  Country: JP (occurrence: JP)
  Receive Date: 20190117
  Receipt Date: 20190318
  Transmission Date: 20190417
  Serious: Yes (Other)
  Sender: FDA-Public Use
  Company Number: JP-SA-2019SA009048

PATIENT
  Age: 35 Year
  Sex: Female

DRUGS (4)
  1. BETAMETHASONE/DEXCHLORPHENIRAMINE MALEATE [Suspect]
     Active Substance: BETAMETHASONE\DEXCHLORPHENIRAMINE MALEATE
     Indication: PRURITUS
     Dosage: 1 DF, BID
     Route: 048
     Dates: start: 20180723, end: 20180727
  2. FEXOFENADINA SANIK 60MG [Suspect]
     Active Substance: FEXOFENADINE HYDROCHLORIDE
     Indication: ALOPECIA AREATA
     Dosage: 60 MG, BID
     Route: 048
     Dates: start: 201708, end: 20180807
  3. EPINASTINE HYDROCHLORIDE. [Suspect]
     Active Substance: EPINASTINE HYDROCHLORIDE
     Indication: PRODUCT USED FOR UNKNOWN INDICATION
     Dosage: 10 MG, BID
     Route: 048
     Dates: start: 20180808, end: 20181031
  4. MEQUITAZINE [Suspect]
     Active Substance: MEQUITAZINE
     Indication: PRURITUS
     Dosage: 3 MG, BID
     Route: 048
     Dates: start: 20180529, end: 20180628

REACTIONS (2)
  - Alopecia areata [Not Recovered/Not Resolved]
  - Condition aggravated [Not Recovered/Not Resolved]

NARRATIVE: CASE EVENT DATE: 201708
